FAERS Safety Report 16751444 (Version 1)
Quarter: 2019Q3

REPORT INFORMATION
  Report Type: Spontaneous
  Country: US (occurrence: US)
  Receive Date: 20190828
  Receipt Date: 20190828
  Transmission Date: 20191005
  Serious: Yes (Other)
  Sender: FDA-Public Use
  Company Number: US-TEVA-2019-US-1097495

PATIENT
  Sex: Female

DRUGS (11)
  1. OXYCODONE [Concomitant]
     Active Substance: OXYCODONE
  2. ARMOUR THYROID [Concomitant]
     Active Substance: THYROID, PORCINE
  3. GLUCOPHAGE [Concomitant]
     Active Substance: METFORMIN HYDROCHLORIDE
  4. ERYTHROMYCIN. [Concomitant]
     Active Substance: ERYTHROMYCIN
  5. ZOFRAN [Concomitant]
     Active Substance: ONDANSETRON HYDROCHLORIDE
  6. IMITREX [Concomitant]
     Active Substance: SUMATRIPTAN SUCCINATE
  7. VITAMIN D3 [Concomitant]
     Active Substance: CHOLECALCIFEROL
  8. ATIVAN [Concomitant]
     Active Substance: LORAZEPAM
  9. SYNRIBO [Suspect]
     Active Substance: OMACETAXINE MEPESUCCINATE
     Indication: CHRONIC MYELOID LEUKAEMIA
     Dosage: DOSAGE : 1.8MG/0.51ML; FOR 14 DAYS
     Dates: start: 20190720
  10. SPIRONOLACTONE. [Concomitant]
     Active Substance: SPIRONOLACTONE
  11. LINZESS [Concomitant]
     Active Substance: LINACLOTIDE

REACTIONS (1)
  - Neutropenia [Unknown]

NARRATIVE: CASE EVENT DATE: 2019
